FAERS Safety Report 5433718-2 (Version None)
Quarter: 2007Q3

REPORT INFORMATION
  Report Type: 
  Country: None (occurrence: None)
  Receive Date: 20070831
  Receipt Date: 20070622
  Transmission Date: 20080115
  Serious: No
  Sender: FDA-Public Use
  Company Number: A0659131A

PATIENT
  Sex: Female

DRUGS (6)
  1. ALLI [Suspect]
     Dates: start: 20070616
  2. STOOL SOFTENER [Concomitant]
  3. MULTI-VITAMIN [Concomitant]
  4. UNSPECIFIED MEDICATION [Concomitant]
     Indication: DEPRESSION
  5. CALCIUM [Concomitant]
  6. VITAMIN D [Concomitant]

REACTIONS (4)
  - FREQUENT BOWEL MOVEMENTS [None]
  - LIP SWELLING [None]
  - ORAL MUCOSAL BLISTERING [None]
  - SENSORY DISTURBANCE [None]
